FAERS Safety Report 18399380 (Version 1)
Quarter: 2020Q4

REPORT INFORMATION
  Report Type: Spontaneous
  Country: CA (occurrence: CA)
  Receive Date: 20201019
  Receipt Date: 20201019
  Transmission Date: 20210114
  Serious: Yes (Hospitalization)
  Sender: FDA-Public Use
  Company Number: CA-PFIZER INC-2020400858

PATIENT
  Age: 81 Year
  Sex: Male

DRUGS (1)
  1. OXALIPLATIN. [Suspect]
     Active Substance: OXALIPLATIN
     Indication: COLORECTAL CANCER
     Dosage: 190 MG (1 EVERY 21 DAYS)
     Route: 042

REACTIONS (7)
  - Asthenia [Unknown]
  - Chills [Unknown]
  - Pain in extremity [Unknown]
  - Cyanosis [Unknown]
  - Diarrhoea [Unknown]
  - Pallor [Unknown]
  - Tenderness [Unknown]
